FAERS Safety Report 9798718 (Version 1)
Quarter: 2014Q1

REPORT INFORMATION
  Report Type: Spontaneous
  Country: US (occurrence: US)
  Receive Date: 20140106
  Receipt Date: 20140106
  Transmission Date: 20141002
  Serious: No
  Sender: FDA-Public Use
  Company Number: US-GILEAD-2010-0029886

PATIENT
  Sex: Male

DRUGS (13)
  1. LETAIRIS [Suspect]
     Indication: PULMONARY ARTERIAL HYPERTENSION
     Route: 048
     Dates: start: 20100412
  2. TYVASO [Concomitant]
  3. LOMOTIL [Concomitant]
  4. SERTRALINE [Concomitant]
  5. TORSEMIDE [Concomitant]
  6. SYMBICORT [Concomitant]
  7. TEMAZEPAM [Concomitant]
  8. HYDROCODONE W/APAP [Concomitant]
  9. LORCET PLUS [Concomitant]
  10. FISH OIL [Concomitant]
  11. MULTIVITAMIN [Concomitant]
  12. CALCIUM +D [Concomitant]
  13. DUONEB [Concomitant]

REACTIONS (1)
  - Dyspnoea [Not Recovered/Not Resolved]
